FAERS Safety Report 5752028-7 (Version None)
Quarter: 2008Q2

REPORT INFORMATION
  Report Type: 
  Country: None (occurrence: None)
  Receive Date: 20080529
  Receipt Date: 20080526
  Transmission Date: 20081010
  Serious: Yes (Hospitalization)
  Sender: FDA-Public Use
  Company Number: TW-AVENTIS-200814721GDDC

PATIENT
  Age: 38 Year
  Sex: Male

DRUGS (4)
  1. LANTUS [Suspect]
     Indication: DIABETES MELLITUS
     Route: 058
     Dates: start: 20080401, end: 20080516
  2. INSULIN LISPRO [Suspect]
     Indication: DIABETES MELLITUS
     Dosage: DOSE: 10/12/12
     Route: 058
     Dates: start: 20080401, end: 20080516
  3. METFORMIN HCL [Concomitant]
     Indication: DIABETES MELLITUS
     Route: 048
  4. UNKNOWN DRUG [Concomitant]
     Indication: HEPATITIS
     Route: 048

REACTIONS (4)
  - DIABETIC KETOACIDOSIS [None]
  - DRUG INEFFECTIVE [None]
  - HYPERGLYCAEMIA [None]
  - PHARMACEUTICAL PRODUCT COMPLAINT [None]
